FAERS Safety Report 4745589-8 (Version None)
Quarter: 2005Q3

REPORT INFORMATION
  Report Type: 
  Country: None (occurrence: None)
  Receive Date: 20050815
  Receipt Date: 20050802
  Transmission Date: 20060218
  Serious: Yes (Other)
  Sender: FDA-Public Use
  Company Number: 2005081311

PATIENT
  Sex: Male

DRUGS (1)
  1. LIPITOR [Suspect]
     Indication: ILL-DEFINED DISORDER

REACTIONS (8)
  - BEDRIDDEN [None]
  - FLUID INTAKE REDUCED [None]
  - HEPATIC FAILURE [None]
  - HYPERSENSITIVITY [None]
  - HYPERTENSION [None]
  - ORAL INTAKE REDUCED [None]
  - RESPIRATORY RATE INCREASED [None]
  - WEIGHT DECREASED [None]
